FAERS Safety Report 24792602 (Version 2)
Quarter: 2025Q3

REPORT INFORMATION
  Report Type: Spontaneous
  Country: JP (occurrence: JP)
  Receive Date: 20241231
  Receipt Date: 20250803
  Transmission Date: 20251020
  Serious: Yes (Other)
  Sender: ALEXION PHARMACEUTICALS
  Company Number: JP-ASTRAZENECA-240106993_064320_P_1

PATIENT
  Age: 8 Decade
  Sex: Female
  Weight: 52 kg

DRUGS (3)
  1. ANDEXXA [Suspect]
     Active Substance: ANDEXANET ALFA
     Indication: Subarachnoid haemorrhage
     Dates: start: 20240325, end: 20240325
  2. APIXABAN [Concomitant]
     Active Substance: APIXABAN
     Indication: Atrial fibrillation
     Dosage: 5 MILLIGRAM, BID
  3. HEPARIN SODIUM [Concomitant]
     Active Substance: HEPARIN SODIUM
     Route: 065

REACTIONS (2)
  - Cerebral infarction [Recovering/Resolving]
  - Heparin resistance [Not Recovered/Not Resolved]

NARRATIVE: CASE EVENT DATE: 20240325
